FAERS Safety Report 6216324-1 (Version None)
Quarter: 2009Q2

REPORT INFORMATION
  Report Type: 
  Country: None (occurrence: None)
  Receive Date: 20090605
  Receipt Date: 20090525
  Transmission Date: 20091009
  Serious: Yes (Hospitalization)
  Sender: FDA-Public Use
  Company Number: FR-JNJFOC-20090601714

PATIENT
  Sex: Male

DRUGS (9)
  1. IXPRIM [Suspect]
     Indication: BACK PAIN
     Route: 048
     Dates: start: 20090325, end: 20090327
  2. TOPALGIC [Suspect]
     Indication: BACK PAIN
     Route: 048
     Dates: start: 20090324, end: 20090327
  3. DAFALGAN [Suspect]
     Indication: BACK PAIN
     Route: 048
  4. AMARYL [Concomitant]
     Indication: DIABETES MELLITUS
     Route: 065
  5. PRAVASTATIN [Concomitant]
     Indication: DYSLIPIDAEMIA
     Route: 065
  6. SPECIAFOLDINE [Concomitant]
     Indication: FOLATE DEFICIENCY
     Route: 065
  7. BRICANYL [Concomitant]
     Indication: CHRONIC OBSTRUCTIVE PULMONARY DISEASE
     Route: 065
  8. PULMICORT-100 [Concomitant]
     Indication: CHRONIC OBSTRUCTIVE PULMONARY DISEASE
     Route: 065
  9. NICERGOLINE [Concomitant]
     Indication: ASTHENIA
     Route: 065

REACTIONS (1)
  - CHOLESTASIS [None]
